FAERS Safety Report 5512922-9 (Version None)
Quarter: 2007Q4

REPORT INFORMATION
  Report Type: 
  Country: None (occurrence: None)
  Receive Date: 20071112
  Receipt Date: 20071107
  Transmission Date: 20080405
  Serious: Yes (Death)
  Sender: FDA-Public Use
  Company Number: B0494913A

PATIENT
  Age: 73 Year
  Sex: Female

DRUGS (10)
  1. AUGMENTIN [Suspect]
     Indication: RESPIRATORY TRACT INFECTION
     Dosage: 4000MG PER DAY
     Route: 048
     Dates: start: 20070320, end: 20070322
  2. VALSARTAN AND HYDROCHLOROTHIAZIDE [Suspect]
     Indication: HYPERTENSION
     Dosage: 12.5MG PER DAY
     Route: 048
     Dates: start: 20070101, end: 20070322
  3. DIGOXIN [Concomitant]
     Indication: DRUG USE FOR UNKNOWN INDICATION
     Dosage: .25MG PER DAY
     Route: 048
     Dates: start: 20040101
  4. CARDURA [Concomitant]
     Indication: DRUG USE FOR UNKNOWN INDICATION
     Dosage: 4MG PER DAY
     Route: 048
     Dates: start: 20040101
  5. SINTROM [Concomitant]
     Indication: ATRIAL FIBRILLATION
     Route: 048
     Dates: start: 20040101
  6. VALS [Concomitant]
     Indication: HYPERTENSION
     Dosage: 80MG PER DAY
     Route: 048
     Dates: start: 20040101, end: 20070101
  7. EMEPROTON [Concomitant]
     Indication: DRUG USE FOR UNKNOWN INDICATION
     Dosage: 20MG PER DAY
     Route: 048
     Dates: start: 20040101
  8. ZARATOR [Concomitant]
     Dosage: 10MG PER DAY
     Route: 048
     Dates: start: 20040101
  9. SEGURIL [Concomitant]
     Indication: DRUG USE FOR UNKNOWN INDICATION
     Dosage: 80MG PER DAY
     Route: 048
     Dates: start: 20040101
  10. AREMIS [Concomitant]
     Indication: DRUG USE FOR UNKNOWN INDICATION
     Dosage: 50MG PER DAY
     Route: 048
     Dates: start: 20040101

REACTIONS (5)
  - RENAL FAILURE [None]
  - RESPIRATORY ARREST [None]
  - RESPIRATORY FAILURE [None]
  - SEPTIC SHOCK [None]
  - TOXIC EPIDERMAL NECROLYSIS [None]
